FAERS Safety Report 6429399-1 (Version None)
Quarter: 2009Q4

REPORT INFORMATION
  Report Type: 
  Country: None (occurrence: None)
  Receive Date: 20091105
  Receipt Date: 20090410
  Transmission Date: 20100525
  Serious: No
  Sender: FDA-Public Use
  Company Number: US-ABBOTT-09P-163-0567750-00

PATIENT
  Sex: Male

DRUGS (17)
  1. KALETRA [Suspect]
     Indication: HIV INFECTION
     Dates: start: 20050101
  2. DEPAKOTE [Concomitant]
     Indication: NEUROPATHY PERIPHERAL
  3. LORAZEPAM [Concomitant]
     Indication: ANXIOLYTIC THERAPY
  4. TRIZIVIR [Concomitant]
     Indication: HIV INFECTION
  5. DAPSONE [Concomitant]
     Indication: PNEUMONIA
  6. DAPSONE [Concomitant]
     Indication: PROPHYLAXIS
  7. METOPROLOL [Concomitant]
     Indication: HYPERTENSION
  8. LIPITOR [Concomitant]
     Indication: BLOOD CHOLESTEROL INCREASED
  9. LIPITOR [Concomitant]
     Indication: BLOOD TRIGLYCERIDES INCREASED
  10. TRICOR [Concomitant]
     Indication: BLOOD CHOLESTEROL INCREASED
  11. TRICOR [Concomitant]
     Indication: BLOOD TRIGLYCERIDES INCREASED
  12. ZETIA [Concomitant]
     Indication: BLOOD CHOLESTEROL INCREASED
  13. ZETIA [Concomitant]
     Indication: BLOOD TRIGLYCERIDES INCREASED
  14. LOVAZA [Concomitant]
     Indication: BLOOD CHOLESTEROL INCREASED
  15. LOVAZA [Concomitant]
     Indication: BLOOD TRIGLYCERIDES INCREASED
  16. ISENTRESS [Concomitant]
     Indication: HIV INFECTION
  17. REGLAN [Concomitant]
     Indication: DRUG USE FOR UNKNOWN INDICATION

REACTIONS (1)
  - MEDICATION RESIDUE [None]
